FAERS Safety Report 6626196-9 (Version None)
Quarter: 2010Q1

REPORT INFORMATION
  Report Type: 
  Country: None (occurrence: None)
  Receive Date: 20100310
  Receipt Date: 20100226
  Transmission Date: 20100710
  Serious: Yes (Other)
  Sender: FDA-Public Use
  Company Number: NL-WYE-H13872510

PATIENT
  Sex: Male

DRUGS (1)
  1. PANTOZOL [Suspect]
     Dosage: 40 MG, FREQUENCY UNSPECIFIED FOR APPROX 6.5 YRS, THEN WAS SWITCHED TO GENERIC PANTOPRAZOLE IN JUN-09
     Dates: start: 20030101

REACTIONS (2)
  - HEPATIC FUNCTION ABNORMAL [None]
  - WEIGHT INCREASED [None]
